FAERS Safety Report 5099857-3 (Version None)
Quarter: 2006Q3

REPORT INFORMATION
  Report Type: 
  Country: None (occurrence: None)
  Receive Date: 20060908
  Receipt Date: 20060126
  Transmission Date: 20061208
  Serious: Yes (Hospitalization)
  Sender: FDA-Public Use
  Company Number: HQWYE591031JAN06

PATIENT
  Sex: Female
  Weight: 31 kg

DRUGS (16)
  1. ENBREL [Suspect]
     Indication: RHEUMATOID ARTHRITIS
     Route: 058
     Dates: start: 20051006, end: 20060518
  2. RHEUMATREX [Suspect]
     Indication: RHEUMATOID ARTHRITIS
     Route: 048
     Dates: start: 20050531, end: 20050719
  3. RHEUMATREX [Suspect]
     Route: 048
     Dates: start: 20050720, end: 20060510
  4. DOGMATYL [Concomitant]
     Indication: DEPRESSION
     Route: 048
     Dates: end: 20060320
  5. RHYTHMY [Concomitant]
     Indication: INSOMNIA
     Route: 048
     Dates: end: 20060320
  6. PARIET [Concomitant]
     Indication: GASTRIC ULCER
     Route: 048
     Dates: end: 20060126
  7. ONE-ALPHA [Concomitant]
     Dosage: UNKNOWN
     Route: 048
     Dates: end: 20060515
  8. VOLTAREN [Concomitant]
     Indication: RHEUMATOID ARTHRITIS
     Dosage: UNKNOWN, PR SUP
     Route: 054
  9. HOCHUUEKKITOU [Concomitant]
     Dosage: UNKNOWN
     Route: 048
  10. FUNGIZONE [Concomitant]
     Dosage: UNKNOWN
     Route: 048
  11. PROTECADIN [Concomitant]
     Dosage: UNKNOWN
     Route: 048
  12. PREDONINE [Concomitant]
     Indication: RHEUMATOID ARTHRITIS
     Route: 048
  13. PREDNISOLONE [Concomitant]
     Indication: RHEUMATOID ARTHRITIS
     Route: 048
     Dates: start: 20050921, end: 20051014
  14. PREDNISOLONE [Concomitant]
     Route: 048
     Dates: start: 20051015, end: 20051021
  15. PREDNISOLONE [Concomitant]
     Route: 048
     Dates: start: 20051022, end: 20051110
  16. PREDNISOLONE [Concomitant]
     Route: 048
     Dates: start: 20051111, end: 20060329

REACTIONS (12)
  - BLOOD CREATININE INCREASED [None]
  - DECREASED APPETITE [None]
  - DEPRESSION [None]
  - DRUG INEFFECTIVE [None]
  - FALL [None]
  - HUMERUS FRACTURE [None]
  - HYPERCALCAEMIA [None]
  - NAUSEA [None]
  - PLATELET COUNT DECREASED [None]
  - PNEUMONIA [None]
  - PULMONARY CONGESTION [None]
  - WHITE BLOOD CELL COUNT DECREASED [None]
